FAERS Safety Report 8524948 (Version 2)
Quarter: 2013Q1

REPORT INFORMATION
  Report Type: Spontaneous
  Country: US (occurrence: US)
  Receive Date: 20120423
  Receipt Date: 20130206
  Transmission Date: 20140127
  Serious: No
  Sender: FDA-Public Use
  Company Number: US-PFIZER INC-2012096797

PATIENT
  Age: 71 Year
  Sex: Female
  Weight: 63.49 kg

DRUGS (3)
  1. CELEBREX [Suspect]
     Indication: PAIN
     Dosage: 100 MG, 2X/DAY
     Route: 048
     Dates: start: 20120409, end: 20120418
  2. CELEBREX [Suspect]
     Indication: INFLAMMATION
     Dosage: 100 MG, 2X/DAY
     Route: 048
     Dates: start: 20130117
  3. TIMOPTIC [Concomitant]
     Dosage: UNK
     Route: 047

REACTIONS (3)
  - Drug ineffective [Unknown]
  - Joint stiffness [Unknown]
  - Arthralgia [Unknown]
